FAERS Safety Report 6180196-4 (Version None)
Quarter: 2009Q2

REPORT INFORMATION
  Report Type: 
  Country: None (occurrence: None)
  Receive Date: 20090501
  Receipt Date: 20090421
  Transmission Date: 20091009
  Serious: No
  Sender: FDA-Public Use
  Company Number: 2009-195422-NL

PATIENT
  Sex: Female

DRUGS (3)
  1. ETONOGESTREL [Suspect]
     Indication: CONTRACEPTION
     Dosage: DF
     Dates: start: 20020224, end: 20050101
  2. ETONOGESTREL [Suspect]
     Indication: CONTRACEPTION
     Dosage: DF
     Dates: start: 20050101, end: 20080208
  3. ETONOGESTREL [Suspect]
     Indication: CONTRACEPTION
     Dosage: DF
     Dates: start: 20080208

REACTIONS (7)
  - ALOPECIA [None]
  - CELLULITIS [None]
  - IMPLANT SITE DISCOLOURATION [None]
  - IMPLANT SITE PAIN [None]
  - INFLAMMATION [None]
  - KELOID SCAR [None]
  - PAIN [None]
